FAERS Safety Report 7148949-3 (Version None)
Quarter: 2010Q4

REPORT INFORMATION
  Report Type: 
  Country: None (occurrence: None)
  Receive Date: 20101209
  Receipt Date: 20101129
  Transmission Date: 20110411
  Serious: Yes (Other)
  Sender: FDA-Public Use
  Company Number: B0686966A

PATIENT
  Sex: Male

DRUGS (2)
  1. AVAMYS [Suspect]
     Dosage: 110MCG PER DAY
     Route: 045
     Dates: start: 20071101, end: 20100601
  2. ANTIHYPERTENSIVE (UNSPECIFIED) [Concomitant]

REACTIONS (2)
  - ANOSMIA [None]
  - OFF LABEL USE [None]
